FAERS Safety Report 8449323-X (Version None)
Quarter: 2012Q2

REPORT INFORMATION
  Report Type: 
  Country: None (occurrence: None)
  Receive Date: 20120619
  Receipt Date: 20120614
  Transmission Date: 20120825
  Serious: Yes (Life-Threatening, Other)
  Sender: FDA-Public Use
  Company Number: CHPA2012US011049

PATIENT
  Sex: Female

DRUGS (8)
  1. EXCEDRIN TENSION HEADACHE CAPLETS [Suspect]
     Indication: MIGRAINE
     Dosage: 2 DF, UNK
     Route: 048
     Dates: start: 19640101
  2. IMITREX [Suspect]
     Indication: MIGRAINE
     Dosage: UNK
  3. EXCEDRIN (MIGRAINE) [Concomitant]
     Indication: MIGRAINE
     Dosage: UNK DF, UNK
     Route: 048
     Dates: start: 19980101
  4. VITAMINS NOS [Concomitant]
     Dosage: UNK
  5. DRUG THERAPY NOS [Concomitant]
     Dosage: UNK DF, UNK
  6. TREXIMET [Concomitant]
     Indication: MIGRAINE
  7. DEMEROL [Concomitant]
     Indication: MIGRAINE
     Dosage: 50-80 MG, UNK
  8. PHENERGAN [Concomitant]
     Indication: NAUSEA

REACTIONS (12)
  - ABDOMINAL DISCOMFORT [None]
  - SOMNOLENCE [None]
  - TOOTH DISORDER [None]
  - VAGINAL HAEMORRHAGE [None]
  - INSOMNIA [None]
  - TEMPOROMANDIBULAR JOINT SYNDROME [None]
  - FACIAL BONES FRACTURE [None]
  - APHAGIA [None]
  - FEELING ABNORMAL [None]
  - DENTAL CARIES [None]
  - HEADACHE [None]
  - DRUG INEFFECTIVE [None]
